FAERS Safety Report 14992692 (Version 1)
Quarter: 2018Q2

REPORT INFORMATION
  Report Type: Spontaneous
  Country: DE (occurrence: DE)
  Receive Date: 20180609
  Receipt Date: 20180609
  Transmission Date: 20180711
  Serious: Yes (Hospitalization)
  Sender: FDA-Public Use
  Company Number: DE-TEVA-2018-DE-903159

PATIENT
  Age: 63 Year
  Sex: Male
  Weight: 103 kg

DRUGS (12)
  1. SIMVASTATIN. [Concomitant]
     Active Substance: SIMVASTATIN
     Dosage: 0-0-1-0
     Route: 048
  2. CLOPIDOGREL [Suspect]
     Active Substance: CLOPIDOGREL BISULFATE
     Dosage: 1-0-0-0
     Route: 048
  3. ACETYLSALICYLSAEURE [Suspect]
     Active Substance: ASPIRIN
     Dosage: 1-0-0-0
     Route: 048
  4. METOPROLOL. [Concomitant]
     Active Substance: METOPROLOL
     Dosage: 1-0-1-0
     Route: 048
  5. DABIGATRAN [Suspect]
     Active Substance: DABIGATRAN
     Dosage: 1-0-1-0
     Route: 048
  6. TORASEMID [Concomitant]
     Active Substance: TORSEMIDE
     Dosage: 0-0-1-0
     Route: 048
  7. ACLIDINIUM BROMID [Concomitant]
     Dosage: 1-0-1-0
     Route: 055
  8. PANTOPRAZOL [Concomitant]
     Active Substance: PANTOPRAZOLE SODIUM
     Dosage: 1-0-1-0
     Route: 048
  9. VALSARTAN. [Concomitant]
     Active Substance: VALSARTAN
     Dosage: 0-0-1-0
     Route: 048
  10. HYDROCHLOROTHIAZID [Concomitant]
     Active Substance: HYDROCHLOROTHIAZIDE
     Dosage: 1-0-0-0
     Route: 048
  11. EPLERENON [Concomitant]
     Active Substance: EPLERENONE
     Dosage: 0-0-1-0
     Route: 048
  12. AMLODIPIN [Concomitant]
     Active Substance: AMLODIPINE BESYLATE
     Dosage: 1-0-1-0
     Route: 048

REACTIONS (4)
  - Hyponatraemia [Unknown]
  - Haematochezia [Unknown]
  - Anaemia [Unknown]
  - Gastrointestinal haemorrhage [Unknown]
